FAERS Safety Report 12949448 (Version 1)
Quarter: 2016Q4

REPORT INFORMATION
  Report Type: Spontaneous
  Country: US (occurrence: US)
  Receive Date: 20161116
  Receipt Date: 20161116
  Transmission Date: 20170207
  Serious: No
  Sender: FDA-Public Use
  Company Number: US-OSMOTICA_PHARMACEUTICAL_US_LLC-POI0573201600049

PATIENT
  Age: 50 Year
  Sex: Female
  Weight: 86.26 kg

DRUGS (4)
  1. PROZAC [Concomitant]
     Active Substance: FLUOXETINE HYDROCHLORIDE
     Indication: ANXIETY
  2. BETA BLOCKER [Concomitant]
     Active Substance: UNSPECIFIED INGREDIENT
  3. DIVIGEL [Suspect]
     Active Substance: ESTRADIOL
     Dates: start: 201408
  4. THYROID MEDICATION [Concomitant]
     Active Substance: UNSPECIFIED INGREDIENT

REACTIONS (1)
  - Alopecia [Not Recovered/Not Resolved]

NARRATIVE: CASE EVENT DATE: 2014
